FAERS Safety Report 6779613-8 (Version None)
Quarter: 2010Q2

REPORT INFORMATION
  Report Type: 
  Country: None (occurrence: None)
  Receive Date: 20100618
  Receipt Date: 20100609
  Transmission Date: 20101027
  Serious: Yes (Death, Life-Threatening, Hospitalization, Disabling)
  Sender: FDA-Public Use
  Company Number: B0391471A

PATIENT
  Age: 35 Year
  Sex: Female
  Weight: 45 kg

DRUGS (5)
  1. LAMICTAL [Suspect]
     Dosage: 100MG PER DAY
     Route: 048
     Dates: start: 20050714, end: 20050805
  2. RIVOTRIL [Concomitant]
     Indication: EPILEPSY
     Dosage: 1MG TWICE PER DAY
     Route: 048
     Dates: end: 20050801
  3. DEPRAX [Concomitant]
     Indication: EPILEPSY
     Route: 048
     Dates: end: 20050701
  4. TRAZODONE HYDROCHLORIDE [Concomitant]
     Indication: DRUG USE FOR UNKNOWN INDICATION
     Route: 065
  5. REBOXETINE [Concomitant]
     Indication: DRUG USE FOR UNKNOWN INDICATION
     Dosage: 2MG PER DAY
     Route: 065
     Dates: start: 20050718

REACTIONS (21)
  - BLISTER [None]
  - DRUG TOXICITY [None]
  - ERYTHEMA [None]
  - LEUKOPENIA [None]
  - LIVER DISORDER [None]
  - LYMPHADENOPATHY [None]
  - LYMPHOPENIA [None]
  - MUCOSAL INFLAMMATION [None]
  - ORAL CANDIDIASIS [None]
  - OROPHARYNGEAL PAIN [None]
  - OVERDOSE [None]
  - PNEUMONIA [None]
  - PYREXIA [None]
  - RASH MACULO-PAPULAR [None]
  - RESPIRATORY FAILURE [None]
  - SEPSIS [None]
  - SKIN ULCER [None]
  - THERMAL BURN [None]
  - THROMBOCYTOPENIA [None]
  - TOXIC EPIDERMAL NECROLYSIS [None]
  - WEIGHT DECREASED [None]
